FAERS Safety Report 4543638-3 (Version None)
Quarter: 2004Q4

REPORT INFORMATION
  Report Type: 
  Country: None (occurrence: None)
  Receive Date: 20041223
  Receipt Date: 20041119
  Transmission Date: 20050328
  Serious: No
  Sender: FDA-Public Use
  Company Number: US-JNJFOC-20041105317

PATIENT
  Age: 34 Year
  Sex: Female
  Weight: 77.1115 kg

DRUGS (4)
  1. ORTHO EVRA [Suspect]
     Indication: CONTRACEPTION
     Dosage: 1 DOSE(S), 3 IN 4 WEEK, TRANSDERMAL
     Route: 062
     Dates: start: 20030701
  2. TYLENOL SINUS AND COLD (ACETAMINOPHEN/ PSEUDOEPHEDRINE HCL) UNSPECIFIE [Concomitant]
  3. MULTI-VITAMIN (MULTIVITAMINS) [Concomitant]
  4. NAPROXEN SODIUM [Concomitant]

REACTIONS (2)
  - ABDOMINAL DISTENSION [None]
  - DYSMENORRHOEA [None]
